FAERS Safety Report 6595577-4 (Version None)
Quarter: 2010Q1

REPORT INFORMATION
  Report Type: 
  Country: None (occurrence: None)
  Receive Date: 20100223
  Receipt Date: 20100105
  Transmission Date: 20100710
  Serious: Yes (Death)
  Sender: FDA-Public Use
  Company Number: US-TYCO HEALTHCARE/MALLINCKRODT-T201000313

PATIENT
  Age: 46 Year
  Sex: Female

DRUGS (10)
  1. OXYCODONE [Suspect]
     Route: 048
  2. TEMAZEPAM [Suspect]
     Route: 048
  3. BENZODIAZEPINE [Suspect]
     Route: 048
  4. PROMETHAZINE HCL AND CODEINE [Suspect]
     Route: 048
  5. ALPRAZOLAM [Suspect]
     Route: 048
  6. SKELETAL MUSCLE RELAXANT [Suspect]
     Route: 048
  7. CARBAMAZEPINE [Suspect]
     Route: 048
  8. TRAZODONE HCL [Suspect]
     Route: 048
  9. DIPHENHYDRAMINE [Suspect]
     Route: 048
  10. CLEANER (ANIONIC/NONIONIC) [Suspect]
     Route: 048

REACTIONS (1)
  - CARDIO-RESPIRATORY ARREST [None]
